FAERS Safety Report 4505071-X (Version None)
Quarter: 2004Q4

REPORT INFORMATION
  Report Type: 
  Country: None (occurrence: None)
  Receive Date: 20041117
  Receipt Date: 20041117
  Transmission Date: 20050328
  Serious: Yes (Hospitalization)
  Sender: FDA-Public Use
  Company Number: None

PATIENT
  Age: 69 Year

DRUGS (7)
  1. METOPROLOL [Suspect]
     Indication: HYPERTENSION
     Dosage: 25MG BID
     Dates: start: 19970901
  2. ISOSORBIDE [Suspect]
     Indication: ANGINA PECTORIS
     Dosage: 30 MG TID
     Dates: start: 19970101
  3. COLESTIPOL [Concomitant]
  4. LISINOPRIL [Concomitant]
  5. OMEPRAZOLE [Concomitant]
  6. SIMVASTATIN [Concomitant]
  7. ASPIRIN [Concomitant]

REACTIONS (1)
  - SYNCOPE [None]
